FAERS Safety Report 8834228 (Version 2)
Quarter: 2012Q4

REPORT INFORMATION
  Report Type: 
  Country: FR (occurrence: FR)
  Receive Date: 20121010
  Receipt Date: 20121016
  Transmission Date: 20130627
  Serious: No
  Sender: FDA-Public Use
  Company Number: FR-JNJFOC-20121005008

PATIENT
  Age: 60 Year
  Sex: Female

DRUGS (5)
  1. NICOTINE (UNSPECIFIED) [Suspect]
     Route: 065
  2. NICOTINE (UNSPECIFIED) [Suspect]
     Indication: SMOKING CESSATION THERAPY
     Route: 065
  3. DEROXAT [Concomitant]
     Indication: DEPRESSION
     Route: 065
  4. DEROXAT [Concomitant]
     Indication: DEPRESSION
     Route: 065
  5. DEROXAT [Concomitant]
     Indication: DEPRESSION
     Route: 065

REACTIONS (2)
  - Drug ineffective [Not Recovered/Not Resolved]
  - Depression [None]
